FAERS Safety Report 5193605-4 (Version None)
Quarter: 2006Q4

REPORT INFORMATION
  Report Type: 
  Country: None (occurrence: None)
  Receive Date: 20061228
  Receipt Date: 20061012
  Transmission Date: 20070319
  Serious: No
  Sender: FDA-Public Use
  Company Number: US-GLAXOSMITHKLINE-A0623523A

PATIENT
  Age: 65 Year
  Sex: Female
  Weight: 61.4 kg

DRUGS (4)
  1. FLUTICASONE PROPIONATE [Suspect]
     Dosage: 2SPR AT NIGHT
     Route: 045
     Dates: start: 20060501
  2. FLONASE [Concomitant]
     Indication: SINUS CONGESTION
     Route: 045
     Dates: start: 20020101, end: 20060501
  3. PREMARIN [Concomitant]
  4. SYNTHROID [Concomitant]

REACTIONS (4)
  - DRUG EFFECT DECREASED [None]
  - NASAL CONGESTION [None]
  - PHARMACEUTICAL PRODUCT COMPLAINT [None]
  - SINUS DISORDER [None]
